FAERS Safety Report 8238567-8 (Version None)
Quarter: 2012Q1

REPORT INFORMATION
  Report Type: 
  Country: None (occurrence: None)
  Receive Date: 20120327
  Receipt Date: 20120323
  Transmission Date: 20120608
  Serious: Yes (Hospitalization)
  Sender: FDA-Public Use
  Company Number: JP-ABBOTT-11P-087-0715144-00

PATIENT
  Sex: Female
  Weight: 47 kg

DRUGS (30)
  1. LEVOMEPROMAZINE [Concomitant]
     Indication: INSOMNIA
     Route: 048
     Dates: start: 20110208
  2. LOXOPROFEN SODIUM [Concomitant]
     Indication: PAIN
     Route: 048
     Dates: start: 20110124
  3. ANTIBIOTICS-RESISTANT LACTIC ACID BACTERIAE [Concomitant]
     Indication: DIARRHOEA
     Route: 048
  4. CELECOXIB [Concomitant]
     Indication: PRODUCT USED FOR UNKNOWN INDICATION
     Dosage: 400MG DAILY
     Route: 048
  5. LACTOMIN [Concomitant]
     Indication: PRODUCT USED FOR UNKNOWN INDICATION
     Dates: start: 20110208
  6. PREDNISOLONE [Concomitant]
     Dates: start: 20110310, end: 20110314
  7. HUMIRA [Suspect]
     Dates: start: 20110308, end: 20110308
  8. HUMIRA [Suspect]
     Dates: end: 20110228
  9. CHINESE HERBAL MEDICINE (SHAKUYAKUKANZOTO) [Concomitant]
     Indication: MYALGIA
     Route: 048
     Dates: start: 20110208, end: 20110215
  10. CROTAMITON [Concomitant]
     Indication: ASTEATOSIS
     Route: 061
  11. TRAZODONE HYDROCHLORIDE [Concomitant]
     Indication: DEPRESSION
     Route: 048
     Dates: start: 20110208
  12. RABEPRAZOLE SODIUM [Concomitant]
     Indication: PROPHYLAXIS
  13. COLIBACILLUS VACCINE_HYDROCORTISONE [Concomitant]
     Indication: PAIN
     Dosage: AS NEEDED FOR PAIN
     Route: 061
  14. POVIDONE-IODINE (FORMULA 47) [Concomitant]
     Indication: PHARYNGITIS
  15. POVIDONE-IODINE (FORMULA 47) [Concomitant]
     Indication: PROPHYLAXIS
  16. LOXOPROFEN SODIUM [Concomitant]
     Indication: PYREXIA
     Route: 061
  17. PREDNISOLONE [Concomitant]
     Route: 048
     Dates: start: 20110315
  18. LOPERAMIDE HCL [Concomitant]
     Indication: PRODUCT USED FOR UNKNOWN INDICATION
     Dates: start: 20110131
  19. FLUNITRAZEPAM [Concomitant]
     Indication: DEPRESSION
     Route: 048
     Dates: start: 20110208
  20. PREDNISOLONE [Concomitant]
     Route: 048
     Dates: start: 20110213, end: 20110302
  21. RABEPRAZOLE SODIUM [Concomitant]
     Indication: ULCER
     Route: 048
     Dates: start: 20110208
  22. PREDNISOLONE [Concomitant]
     Indication: CROHN'S DISEASE
     Dates: start: 20110210
  23. HUMIRA [Suspect]
     Indication: CROHN'S DISEASE
     Dosage: 160 MG ONCE
     Route: 058
     Dates: start: 20110208, end: 20110208
  24. MECOBALAMIN [Concomitant]
     Indication: NEUROPATHY PERIPHERAL
     Route: 048
     Dates: start: 20110208, end: 20110215
  25. SPIRONOLACTONE [Concomitant]
     Indication: PRODUCT USED FOR UNKNOWN INDICATION
     Dosage: 5MG DAILY
     Route: 048
     Dates: start: 20110314
  26. POTASSIUM CHLORIDE [Concomitant]
     Indication: HYPOKALAEMIA
     Route: 048
     Dates: start: 20110204
  27. PREDNISOLONE [Concomitant]
     Route: 048
     Dates: start: 20110303, end: 20110309
  28. ANTI-HEMORRHOID DRUG [Concomitant]
     Indication: PRODUCT USED FOR UNKNOWN INDICATION
     Route: 061
  29. METOCLOPRAMIDE [Concomitant]
     Indication: NAUSEA
     Route: 048
  30. KETOPROFEN [Concomitant]
     Indication: PAIN
     Route: 061

REACTIONS (6)
  - LIVER DISORDER [None]
  - ASCITES [None]
  - RECTAL ULCER HAEMORRHAGE [None]
  - C-REACTIVE PROTEIN INCREASED [None]
  - BLOOD ALBUMIN DECREASED [None]
  - MELAENA [None]
